FAERS Safety Report 8085793-7 (Version None)
Quarter: 2012Q1

REPORT INFORMATION
  Report Type: 
  Country: None (occurrence: None)
  Receive Date: 20120128
  Receipt Date: 20110609
  Transmission Date: 20120608
  Serious: Yes (Other)
  Sender: FDA-Public Use
  Company Number: US-ABBOTT-11P-163-0731253-00

PATIENT
  Sex: Male
  Weight: 103.06 kg

DRUGS (5)
  1. HUMIRA [Suspect]
     Indication: RHEUMATOID ARTHRITIS
     Route: 058
     Dates: start: 20110301, end: 20110601
  2. FOLIC ACID [Concomitant]
     Indication: PRODUCT USED FOR UNKNOWN INDICATION
  3. METHOTREXATE [Concomitant]
     Indication: PRODUCT USED FOR UNKNOWN INDICATION
  4. UNKNOWN BLOOD PRESSURE MEDICATION [Concomitant]
     Indication: BLOOD PRESSURE
  5. UNKNOWN PAIN MEDICATION [Concomitant]
     Indication: PAIN

REACTIONS (7)
  - CHOLECYSTITIS [None]
  - BODY TEMPERATURE INCREASED [None]
  - NAUSEA [None]
  - ABDOMINAL PAIN [None]
  - CHOLELITHIASIS [None]
  - INCISION SITE PAIN [None]
  - INCISION SITE ERYTHEMA [None]
